FAERS Safety Report 23343045 (Version 1)
Quarter: 2023Q4

REPORT INFORMATION
  Report Type: Spontaneous
  Country: US (occurrence: None)
  Receive Date: 20231226
  Receipt Date: 20231226
  Transmission Date: 20240110
  Serious: Yes (Hospitalization)
  Sender: FDA-Public Use
  Company Number: None

PATIENT
  Age: 86 Year
  Sex: Male
  Weight: 95 kg

DRUGS (1)
  1. TRAMADOL HYDROCHLORIDE [Suspect]
     Active Substance: TRAMADOL HYDROCHLORIDE
     Dosage: FREQUENCY : TWICE A DAY;?
     Route: 048
     Dates: start: 20131209, end: 20231117

REACTIONS (12)
  - Mental status changes [None]
  - Fall [None]
  - Blood pressure increased [None]
  - Tachycardia [None]
  - Pyrexia [None]
  - Serotonin syndrome [None]
  - Meningitis [None]
  - Bacteraemia [None]
  - CSF culture positive [None]
  - Streptococcal sepsis [None]
  - Seizure [None]
  - Clonus [None]

NARRATIVE: CASE EVENT DATE: 20231108
